FAERS Safety Report 4834741-9 (Version None)
Quarter: 2005Q4

REPORT INFORMATION
  Report Type: 
  Country: None (occurrence: None)
  Receive Date: 20051122
  Receipt Date: 20050811
  Transmission Date: 20060501
  Serious: No
  Sender: FDA-Public Use
  Company Number: US-BRISTOL-MYERS SQUIBB COMPANY-13072947

PATIENT
  Age: 62 Year
  Sex: Female
  Weight: 67 kg

DRUGS (4)
  1. PRAVACHOL [Suspect]
     Indication: BLOOD CHOLESTEROL INCREASED
  2. SYNTHROID [Concomitant]
  3. OMEGA-3 [Concomitant]
  4. OSTEO BI-FLEX [Concomitant]

REACTIONS (2)
  - CHEST DISCOMFORT [None]
  - TREMOR [None]
